FAERS Safety Report 15898642 (Version 1)
Quarter: 2019Q1

REPORT INFORMATION
  Report Type: Spontaneous
  Country: IT (occurrence: IT)
  Receive Date: 20190201
  Receipt Date: 20190201
  Transmission Date: 20190417
  Serious: Yes (Other)
  Sender: FDA-Public Use
  Company Number: IT-ACCORD-102489

PATIENT
  Age: 56 Year
  Sex: Male
  Weight: 54 kg

DRUGS (2)
  1. CARBOPLATIN. [Suspect]
     Active Substance: CARBOPLATIN
     Indication: OESOPHAGEAL SQUAMOUS CELL CARCINOMA
     Route: 042
     Dates: start: 20180108, end: 20180226
  2. PACLITAXEL/PACLITAXEL LIPOSOME [Suspect]
     Active Substance: PACLITAXEL
     Indication: OESOPHAGEAL SQUAMOUS CELL CARCINOMA
     Route: 042
     Dates: start: 20180108, end: 20180206

REACTIONS (8)
  - Chills [Recovered/Resolved]
  - Thrombocytopenia [Recovered/Resolved]
  - Blood bilirubin increased [Recovering/Resolving]
  - Off label use [Unknown]
  - Dyspepsia [Recovering/Resolving]
  - Hyperpyrexia [Recovered/Resolved]
  - Asthenia [Recovering/Resolving]
  - Neutropenia [Recovered/Resolved]

NARRATIVE: CASE EVENT DATE: 20180111
